FAERS Safety Report 21915185 (Version 1)
Quarter: 2023Q1

REPORT INFORMATION
  Report Type: Spontaneous
  Country: US (occurrence: US)
  Receive Date: 20230126
  Receipt Date: 20230126
  Transmission Date: 20230418
  Serious: No
  Sender: FDA-Public Use
  Company Number: US-002147023-NVSC2023US015900

PATIENT
  Sex: Female

DRUGS (2)
  1. CIPROFLOXACIN [Suspect]
     Active Substance: CIPROFLOXACIN
     Indication: Product used for unknown indication
     Dosage: 4 DRP
     Route: 065
     Dates: start: 20230118, end: 20230118
  2. DEXAMETHASONE [Suspect]
     Active Substance: DEXAMETHASONE
     Indication: Product used for unknown indication
     Dosage: 4 DRP
     Route: 065
     Dates: start: 20230118, end: 20230118

REACTIONS (3)
  - Ear discomfort [Unknown]
  - Ear haemorrhage [Unknown]
  - Epistaxis [Unknown]
